FAERS Safety Report 8524992-4 (Version None)
Quarter: 2012Q3

REPORT INFORMATION
  Report Type: 
  Country: None (occurrence: None)
  Receive Date: 20120720
  Receipt Date: 20120711
  Transmission Date: 20120928
  Serious: Yes (Other)
  Sender: FDA-Public Use
  Company Number: US-ASTRAZENECA-2012SE47980

PATIENT
  Age: 65 Year
  Sex: Female

DRUGS (5)
  1. SYMBICORT [Suspect]
     Indication: ASTHMA
     Dosage: 320 MCG 2 PUFFS BID
     Route: 055
     Dates: start: 20110101
  2. SYMBICORT [Suspect]
     Indication: CHRONIC OBSTRUCTIVE PULMONARY DISEASE
     Dosage: 320 MCG 2 PUFFS BID
     Route: 055
     Dates: start: 20110101
  3. SYMBICORT [Suspect]
     Dosage: 320 MCG 1 PUFFS BID TO CONSERVE HER MEDICATION
     Route: 055
     Dates: start: 20120601, end: 20120611
  4. SYMBICORT [Suspect]
     Dosage: 320 MCG 1 PUFFS BID TO CONSERVE HER MEDICATION
     Route: 055
     Dates: start: 20120601, end: 20120611
  5. URSODIOL [Concomitant]
     Indication: BILIARY CIRRHOSIS PRIMARY
     Route: 048

REACTIONS (3)
  - DYSPNOEA [None]
  - PLEURAL NEOPLASM [None]
  - INTENTIONAL DRUG MISUSE [None]
